FAERS Safety Report 7512779-0 (Version None)
Quarter: 2011Q2

REPORT INFORMATION
  Report Type: 
  Country: None (occurrence: None)
  Receive Date: 20110531
  Receipt Date: 20110524
  Transmission Date: 20111010
  Serious: Yes (Death, Hospitalization)
  Sender: FDA-Public Use
  Company Number: B0708436A

PATIENT
  Sex: Female

DRUGS (4)
  1. ATORVASTATIN [Concomitant]
  2. PROMACTA [Suspect]
     Dosage: 50MG PER DAY
     Route: 048
     Dates: start: 20110201, end: 20110224
  3. PREVISCAN [Suspect]
     Indication: ANTIPHOSPHOLIPID SYNDROME
     Route: 048
     Dates: start: 19720101, end: 20110227
  4. ARIXTRA [Suspect]
     Indication: PULMONARY EMBOLISM
     Dosage: 7.5MG PER DAY
     Route: 058
     Dates: start: 20110227

REACTIONS (11)
  - ADRENAL CORTEX NECROSIS [None]
  - PUPILS UNEQUAL [None]
  - COMA [None]
  - PULMONARY EMBOLISM [None]
  - ALTERED STATE OF CONSCIOUSNESS [None]
  - PULMONARY INFARCTION [None]
  - ADRENAL HAEMORRHAGE [None]
  - CEREBRAL HAEMORRHAGE [None]
  - CHEST PAIN [None]
  - VOMITING [None]
  - DIARRHOEA [None]
